FAERS Safety Report 17486600 (Version 2)
Quarter: 2020Q2

REPORT INFORMATION
  Report Type: Report from Study
  Country: US (occurrence: US)
  Receive Date: 20200303
  Receipt Date: 20200402
  Transmission Date: 20200713
  Serious: No
  Sender: FDA-Public Use
  Company Number: NVSC2020US059573

PATIENT
  Age: 17 Year
  Sex: Female

DRUGS (1)
  1. GILENYA [Suspect]
     Active Substance: FINGOLIMOD HYDROCHLORIDE
     Indication: MULTIPLE SCLEROSIS
     Dosage: 0.5 MG, QD
     Route: 048
     Dates: start: 20181026

REACTIONS (4)
  - Coagulopathy [Unknown]
  - Polycystic ovaries [Unknown]
  - Abdominal pain lower [Unknown]
  - Menstruation delayed [Unknown]

NARRATIVE: CASE EVENT DATE: 20190515
